FAERS Safety Report 9759687 (Version 2)
Quarter: 2015Q3

REPORT INFORMATION
  Report Type: Spontaneous
  Country: US (occurrence: US)
  Receive Date: 20131216
  Receipt Date: 20150806
  Transmission Date: 20151125
  Serious: No
  Sender: FDA-Public Use
  Company Number: US-GILEAD-2010-0028615

PATIENT
  Age: 75 Year
  Sex: Female
  Weight: 71.67 kg

DRUGS (36)
  1. CALCIUM [Concomitant]
     Active Substance: CALCIUM
  2. ASPIRIN. [Concomitant]
     Active Substance: ASPIRIN
  3. FEXOFENADINE HCL [Concomitant]
     Active Substance: FEXOFENADINE HYDROCHLORIDE
  4. PANTOPRAZOLE [Concomitant]
     Active Substance: PANTOPRAZOLE SODIUM
  5. LANTUS SOLOSTAR [Concomitant]
     Active Substance: INSULIN GLARGINE
  6. BISACODYL. [Concomitant]
     Active Substance: BISACODYL
  7. METOPROLOL [Concomitant]
     Active Substance: METOPROLOL
  8. NABUMETONE. [Concomitant]
     Active Substance: NABUMETONE
  9. OXYGEN. [Concomitant]
     Active Substance: OXYGEN
  10. FOSAMAX [Concomitant]
     Active Substance: ALENDRONATE SODIUM
  11. SIMVASTATIN. [Concomitant]
     Active Substance: SIMVASTATIN
  12. FUROSEMIDE. [Concomitant]
     Active Substance: FUROSEMIDE
  13. INSULIN [Concomitant]
     Active Substance: INSULIN NOS
  14. LEVAQUIN [Concomitant]
     Active Substance: LEVOFLOXACIN
  15. LASIX [Concomitant]
     Active Substance: FUROSEMIDE
  16. LEVOTHYROXINE. [Concomitant]
     Active Substance: LEVOTHYROXINE
  17. IRON-F [Concomitant]
  18. ALBUTEROL. [Concomitant]
     Active Substance: ALBUTEROL
  19. AMBIEN [Concomitant]
     Active Substance: ZOLPIDEM TARTRATE
  20. MUCINEX D [Concomitant]
     Active Substance: GUAIFENESIN\PSEUDOEPHEDRINE HYDROCHLORIDE
  21. BUMEX [Concomitant]
     Active Substance: BUMETANIDE
  22. METOPROLOL [Concomitant]
     Active Substance: METOPROLOL
  23. SODIUM CHLORIDE/BENZYL ALCOHOL [Concomitant]
  24. SERTRALINE [Concomitant]
     Active Substance: SERTRALINE HYDROCHLORIDE
  25. NITROGLYCERIN. [Concomitant]
     Active Substance: NITROGLYCERIN
  26. LETAIRIS [Suspect]
     Active Substance: AMBRISENTAN
     Indication: PULMONARY ARTERIAL HYPERTENSION
     Route: 048
     Dates: start: 20080923, end: 201003
  27. PROCRIT [Concomitant]
     Active Substance: ERYTHROPOIETIN
  28. LEVOXYL [Concomitant]
     Active Substance: LEVOTHYROXINE SODIUM
  29. SPIRIVA [Concomitant]
     Active Substance: TIOTROPIUM BROMIDE MONOHYDRATE
  30. ZOLOFT [Concomitant]
     Active Substance: SERTRALINE HYDROCHLORIDE
  31. FOLIC ACID. [Concomitant]
     Active Substance: FOLIC ACID
  32. ENALAPRIL-HCTZ [Concomitant]
  33. MIRALAX [Concomitant]
     Active Substance: POLYETHYLENE GLYCOL 3350
  34. POTASSIUM CHLORIDE. [Concomitant]
     Active Substance: POTASSIUM CHLORIDE
  35. IRON PENTACARBONYL/ASCORBIC ACID [Concomitant]
  36. NITRO-PATCH [Concomitant]

REACTIONS (1)
  - Haemorrhage [Unknown]
